FAERS Safety Report 11566233 (Version 1)
Quarter: 2015Q3

REPORT INFORMATION
  Report Type: Spontaneous
  Country: US (occurrence: US)
  Receive Date: 20150916
  Receipt Date: 20150916
  Transmission Date: 20151125
  Serious: No
  Sender: FDA-Public Use
  Company Number: US-ELI_LILLY_AND_COMPANY-US200905005719

PATIENT
  Age: 81 Year
  Sex: Female

DRUGS (6)
  1. CALCIUM                                 /N/A/ [Concomitant]
     Dosage: 1500 MG, UNK
  2. VITAMINS NOS [Concomitant]
     Active Substance: VITAMINS
  3. VITAMIN D [Concomitant]
     Active Substance: CHOLECALCIFEROL
  4. FLUCONAZOLE. [Concomitant]
     Active Substance: FLUCONAZOLE
     Indication: COCCIDIOIDOMYCOSIS
     Dosage: UNK, 2/D
  5. FORTEO [Suspect]
     Active Substance: TERIPARATIDE
     Dates: start: 2009, end: 20090517
  6. ASA [Concomitant]
     Active Substance: ASPIRIN
     Dosage: 1/2 TABLET

REACTIONS (7)
  - Blood calcium increased [Not Recovered/Not Resolved]
  - Arthralgia [Unknown]
  - Balance disorder [Unknown]
  - Pulmonary congestion [Not Recovered/Not Resolved]
  - Ultrasound scan abnormal [Not Recovered/Not Resolved]
  - Pain in extremity [Unknown]
  - Breast disorder female [Not Recovered/Not Resolved]

NARRATIVE: CASE EVENT DATE: 200905
